FAERS Safety Report 8970041 (Version 1)
Quarter: 2012Q4

REPORT INFORMATION
  Report Type: 
  Country: US (occurrence: US)
  Receive Date: 20121218
  Receipt Date: 20121218
  Transmission Date: 20130627
  Serious: No
  Sender: FDA-Public Use
  Company Number: US-ABBOTT-12P-163-0917350-00

PATIENT
  Age: 58 Year
  Sex: Female

DRUGS (1)
  1. PROMETRIUM [Suspect]
     Indication: MENOPAUSAL SYMPTOMS
     Dates: start: 201111, end: 201203

REACTIONS (2)
  - Off label use [Unknown]
  - Dizziness [Recovered/Resolved]
